FAERS Safety Report 7957075 (Version 2)
Quarter: 2014Q2

REPORT INFORMATION
  Report Type: Spontaneous
  Country: US (occurrence: US)
  Receive Date: 20110524
  Receipt Date: 20140520
  Transmission Date: 20141212
  Serious: Yes (Death, Hospitalization, Other)
  Sender: FDA-Public Use
  Company Number: US-BAYER-2011-042813

PATIENT
  Sex: Female

DRUGS (1)
  1. TRASYLOL [Suspect]
     Indication: VASCULAR GRAFT
     Dosage: UNK
     Route: 042
     Dates: start: 2005

REACTIONS (3)
  - Renal failure [Fatal]
  - Pulmonary oedema [Fatal]
  - Dialysis [None]
